FAERS Safety Report 8151445-8 (Version None)
Quarter: 2012Q1

REPORT INFORMATION
  Report Type: 
  Country: None (occurrence: None)
  Receive Date: 20120220
  Receipt Date: 20120206
  Transmission Date: 20120608
  Serious: Yes (Other)
  Sender: FDA-Public Use
  Company Number: US-ROCHE-1038207

PATIENT
  Sex: Female

DRUGS (1)
  1. RANIBIZUMAB [Suspect]
     Indication: PRODUCT USED FOR UNKNOWN INDICATION
     Route: 050
     Dates: start: 20090301

REACTIONS (7)
  - CATARACT OPERATION [None]
  - VISUAL IMPAIRMENT [None]
  - BLINDNESS UNILATERAL [None]
  - EYE PAIN [None]
  - TENDERNESS [None]
  - GLAUCOMA [None]
  - ABNORMAL SENSATION IN EYE [None]
